FAERS Safety Report 5138639-0 (Version None)
Quarter: 2006Q4

REPORT INFORMATION
  Report Type: 
  Country: None (occurrence: None)
  Receive Date: 20061030
  Receipt Date: 20061026
  Transmission Date: 20070319
  Serious: Yes (Hospitalization)
  Sender: FDA-Public Use
  Company Number: FR-GLAXOSMITHKLINE-B0444250A

PATIENT
  Age: 63 Year
  Sex: Male
  Weight: 76 kg

DRUGS (10)
  1. CLAMOXYL [Suspect]
     Indication: PRODUCTIVE COUGH
     Dosage: 3G PER DAY
     Route: 048
     Dates: start: 20060702, end: 20060716
  2. LEVOTHYROXINE SODIUM [Suspect]
     Dosage: 100MCG PER DAY
     Route: 048
  3. PREVISCAN [Suspect]
     Indication: MITRAL VALVE DISEASE
     Dosage: 15MG PER DAY
     Route: 048
     Dates: end: 20060706
  4. TRIFLUCAN [Suspect]
     Route: 048
     Dates: start: 20060702, end: 20060706
  5. CARBOPLATIN [Suspect]
     Route: 042
     Dates: start: 20060623, end: 20060623
  6. FLUOROURACIL [Suspect]
     Route: 042
     Dates: start: 20060623, end: 20060623
  7. ZELITREX [Concomitant]
     Dates: start: 20060623
  8. ZOCOR [Concomitant]
  9. TRIATEC [Concomitant]
  10. CACIT D3 [Concomitant]
     Route: 065

REACTIONS (4)
  - DRUG INTERACTION [None]
  - FULL BLOOD COUNT ABNORMAL [None]
  - INTERNATIONAL NORMALISED RATIO INCREASED [None]
  - RENAL FAILURE [None]
